FAERS Safety Report 5749994-2 (Version None)
Quarter: 2008Q2

REPORT INFORMATION
  Report Type: 
  Country: None (occurrence: None)
  Receive Date: 20080527
  Receipt Date: 20080513
  Transmission Date: 20081010
  Serious: Yes (Hospitalization)
  Sender: FDA-Public Use
  Company Number: FR-ROCHE-487705

PATIENT
  Sex: Male
  Weight: 60 kg

DRUGS (3)
  1. RIBAVIRIN [Suspect]
     Indication: HEPATITIS C
     Route: 048
     Dates: start: 20070102
  2. PEGASYS [Suspect]
     Indication: HEPATITIS C
     Dosage: DOSE ALSO REPORTED AS 25.7143 MCG.
     Route: 058
     Dates: start: 20070102
  3. BLINDED TELAPREVIR [Suspect]
     Indication: HEPATITIS C
     Route: 048
     Dates: start: 20070102

REACTIONS (2)
  - ANAEMIA [None]
  - GASTROENTERITIS [None]
